FAERS Safety Report 8563003 (Version 2)
Quarter: 2012Q4

REPORT INFORMATION
  Report Type: 
  Country: US (occurrence: US)
  Receive Date: 20120515
  Receipt Date: 20120831
  Transmission Date: 20130627
  Serious: Yes (Other)
  Sender: FDA-Public Use
  Company Number: US-BAYER-2012-046870

PATIENT
  Age: 19 Year
  Sex: Female
  Weight: 66 kg

DRUGS (6)
  1. YAZ [Suspect]
     Indication: ACNE
     Dosage: UNK
     Dates: start: 20081001, end: 201105
  2. YAZ [Suspect]
     Indication: PREMENSTRUAL SYNDROME
  3. YAZ [Suspect]
     Indication: PREMENSTRUAL SYNDROME
  4. GIANVI [Suspect]
     Indication: ACNE
     Dosage: UNK
  5. GIANVI [Suspect]
     Indication: PREMENSTRUAL SYNDROME
  6. GIANVI [Suspect]
     Indication: PREMENSTRUAL SYNDROME

REACTIONS (7)
  - Cholelithiasis [None]
  - Cholecystitis chronic [None]
  - Injury [None]
  - Pain [None]
  - Anxiety [None]
  - Anhedonia [None]
  - Gallbladder disorder [None]
